FAERS Safety Report 5694065-7 (Version None)
Quarter: 2008Q2

REPORT INFORMATION
  Report Type: 
  Country: None (occurrence: None)
  Receive Date: 20080403
  Receipt Date: 20080324
  Transmission Date: 20081010
  Serious: Yes (Other)
  Sender: FDA-Public Use
  Company Number: GB-GENENTECH-258736

PATIENT

DRUGS (4)
  1. MABTHERA [Suspect]
     Indication: SJOGREN'S SYNDROME
     Dosage: 1 G, QD
     Route: 042
  2. METHYLPREDNISOLONE [Suspect]
     Indication: DRUG USE FOR UNKNOWN INDICATION
     Dosage: 100 MG, QD
     Route: 065
  3. PREDNISOLONE [Suspect]
     Indication: DRUG USE FOR UNKNOWN INDICATION
     Dosage: 60 MG, QD
     Route: 048
  4. PREDNISOLONE [Suspect]
     Dosage: 30 MG, QD
     Route: 048

REACTIONS (1)
  - SERUM SICKNESS [None]
